FAERS Safety Report 8294835-5 (Version None)
Quarter: 2012Q2

REPORT INFORMATION
  Report Type: 
  Country: None (occurrence: None)
  Receive Date: 20120418
  Receipt Date: 20120410
  Transmission Date: 20120825
  Serious: Yes (Other)
  Sender: FDA-Public Use
  Company Number: NO-JNJFOC-20120406279

PATIENT
  Age: 71 Year
  Sex: Male

DRUGS (4)
  1. PHENOBARBITAL TAB [Concomitant]
     Indication: BLOOD PRESSURE
     Route: 065
  2. PHENOBARBITAL TAB [Concomitant]
     Indication: BLOOD CHOLESTEROL
     Route: 065
  3. COLGATE MOUTHWASH [Concomitant]
     Indication: PRODUCT USED FOR UNKNOWN INDICATION
     Route: 048
  4. LISTERINE [Suspect]
     Indication: DENTAL DISORDER PROPHYLAXIS
     Dosage: INITIATED TWO TO THREE YEARS AGO
     Route: 048

REACTIONS (1)
  - TOOTH DISORDER [None]
